FAERS Safety Report 6412043-7 (Version None)
Quarter: 2009Q4

REPORT INFORMATION
  Report Type: 
  Country: None (occurrence: None)
  Receive Date: 20091023
  Receipt Date: 20091019
  Transmission Date: 20100525
  Serious: Yes (Hospitalization, Other)
  Sender: FDA-Public Use
  Company Number: JP-B.I. PHARMACEUTICALS,INC./RIDGEFIELD-2009-BP-09287NB

PATIENT
  Sex: Male
  Weight: 62.9 kg

DRUGS (13)
  1. BI-SIFROL TABLETS [Suspect]
     Indication: PARKINSON'S DISEASE
     Dosage: 0.25 MG
     Route: 048
     Dates: start: 20050729, end: 20090706
  2. BI-SIFROL TABLETS [Suspect]
     Dosage: 1 MG
     Route: 048
     Dates: start: 20070516, end: 20070813
  3. BI-SIFROL TABLETS [Suspect]
     Dosage: 1 MG
     Route: 048
     Dates: start: 20080709, end: 20090706
  4. PERMAX [Suspect]
     Indication: PARKINSON'S DISEASE
     Dosage: 150 MCG
     Route: 048
     Dates: start: 20030901, end: 20081223
  5. MENESIT [Suspect]
     Indication: PARKINSON'S DISEASE
     Dosage: 600 MG
     Route: 048
     Dates: start: 20000101
  6. MAGMITT [Concomitant]
     Dosage: 1980 MG
     Route: 048
     Dates: start: 20040811
  7. PURSENNID [Concomitant]
     Dosage: 24 MG
     Route: 048
     Dates: start: 20040811
  8. BLADDERON [Concomitant]
     Dosage: 600 MG
     Route: 048
     Dates: start: 20050831, end: 20081104
  9. VESICARE [Concomitant]
     Dosage: 2.5 MG
     Route: 048
     Dates: start: 20080903, end: 20081007
  10. DETRUSITOL [Concomitant]
     Dosage: 4 MG
     Route: 048
     Dates: start: 20081105
  11. HARNAL [Concomitant]
     Dosage: 0.2 MG
     Route: 048
     Dates: start: 20050831, end: 20061001
  12. HARNAL D [Concomitant]
     Dosage: 0.2 MG
     Route: 048
     Dates: start: 20070919, end: 20080805
  13. FLIVAS [Concomitant]
     Dosage: 75 MG
     Route: 048
     Dates: start: 20080806

REACTIONS (5)
  - ABNORMAL BEHAVIOUR [None]
  - HALLUCINATION, VISUAL [None]
  - SOMNOLENCE [None]
  - SUDDEN ONSET OF SLEEP [None]
  - UNEVALUABLE EVENT [None]
